FAERS Safety Report 9642888 (Version 2)
Quarter: 2013Q4

REPORT INFORMATION
  Report Type: Spontaneous
  Country: JP (occurrence: JP)
  Receive Date: 20131024
  Receipt Date: 20131105
  Transmission Date: 20140711
  Serious: Yes (Death, Hospitalization)
  Sender: FDA-Public Use
  Company Number: PHHY2013JP119528

PATIENT
  Age: 49 Year
  Sex: Female

DRUGS (2)
  1. AREDIA [Suspect]
     Indication: METASTASES TO BONE
     Dosage: UNK UKN, UNK
     Route: 041
     Dates: start: 200301
  2. ZOMETA [Suspect]
     Indication: METASTASES TO BONE
     Dosage: UNK UKN, UNK
     Route: 041
     Dates: start: 200605

REACTIONS (7)
  - Respiratory failure [Fatal]
  - Metastasis [Fatal]
  - Metastases to bone [Unknown]
  - Osteosclerosis [Unknown]
  - Swelling face [Not Recovered/Not Resolved]
  - Oral pain [Not Recovered/Not Resolved]
  - Soft tissue mass [Unknown]
